FAERS Safety Report 9168393 (Version 1)
Quarter: 2013Q1

REPORT INFORMATION
  Report Type: Spontaneous
  Country: IT (occurrence: None)
  Receive Date: 20130307
  Receipt Date: 20130307
  Transmission Date: 20140127
  Serious: Yes (Hospitalization, Other)
  Sender: FDA-Public Use
  Company Number: DAV-AE-MTX-13-14

PATIENT
  Age: 14 Year
  Sex: Male

DRUGS (2)
  1. METHOTREXATE [Suspect]
     Indication: OSTEOSARCOMA
     Dosage: 12.0 G/KG
  2. CISPLATIN [Suspect]
     Indication: OSTEOSARCOMA

REACTIONS (2)
  - Cutaneous tuberculosis [None]
  - Lymph node tuberculosis [None]
